FAERS Safety Report 15666679 (Version 1)
Quarter: 2018Q4

REPORT INFORMATION
  Report Type: Spontaneous
  Country: US (occurrence: US)
  Receive Date: 20181128
  Receipt Date: 20181128
  Transmission Date: 20190205
  Serious: No
  Sender: FDA-Public Use
  Company Number: US-ROCHE-2146282

PATIENT
  Sex: Male

DRUGS (1)
  1. OCREVUS [Suspect]
     Active Substance: OCRELIZUMAB
     Indication: RELAPSING-REMITTING MULTIPLE SCLEROSIS
     Dosage: 300MG FIRST TWO DOSES 600MG AFTER 6 MONTHS
     Route: 042
     Dates: start: 20170601

REACTIONS (2)
  - Paraesthesia [Recovered/Resolved]
  - Insomnia [Recovered/Resolved]
